FAERS Safety Report 7248924-4 (Version None)
Quarter: 2011Q1

REPORT INFORMATION
  Report Type: 
  Country: None (occurrence: None)
  Receive Date: 20110128
  Receipt Date: 20100712
  Transmission Date: 20110831
  Serious: Yes (Hospitalization, Other)
  Sender: FDA-Public Use
  Company Number: US-BAYER-200940516NA

PATIENT
  Sex: Female

DRUGS (16)
  1. YASMIN [Suspect]
     Indication: PRODUCT USED FOR UNKNOWN INDICATION
  2. ALBUTEROL [Concomitant]
     Indication: ASTHMA
     Dosage: UNK
     Route: 045
     Dates: start: 20010214
  3. FLUOCINONIDE [Concomitant]
     Indication: PSORIASIS
     Dosage: 0.025 %, BID
     Route: 003
     Dates: start: 19940101
  4. LEVAQUIN [Concomitant]
     Indication: PSORIASIS
     Dosage: UNK
     Route: 048
     Dates: start: 20070207
  5. SINGULAIR [Concomitant]
     Indication: ASTHMA
     Dosage: UNK
     Dates: start: 20070701
  6. ZANTAC [Concomitant]
  7. DOVONEX [Concomitant]
     Indication: PSORIASIS
     Dosage: UNK
     Route: 003
     Dates: start: 20061201
  8. HYPERCARE [Concomitant]
     Indication: PSORIASIS
     Dosage: UNK
     Route: 003
     Dates: start: 20061011
  9. XANAX [Concomitant]
  10. LAXATIVES [Concomitant]
     Indication: CONSTIPATION
  11. BENADRYL [Concomitant]
     Indication: CONTRAST MEDIA ALLERGY
  12. POTASSIUM CHLORIDE [Concomitant]
     Dosage: 20 MEQ, BID
     Route: 048
  13. CORTICOSTEROIDS [Concomitant]
     Indication: CONTRAST MEDIA ALLERGY
  14. ALPRAZOLAM [Concomitant]
     Indication: ANXIETY
     Dosage: UNK
     Dates: start: 20051123
  15. YAZ [Suspect]
     Indication: ENDOMETRIOSIS
     Dosage: UNK UNK, QD
     Dates: start: 20061101, end: 20071217
  16. DARVOCET-N 100 [Concomitant]
     Dosage: 100 MG, UNK

REACTIONS (6)
  - PORTAL VEIN THROMBOSIS [None]
  - ABDOMINAL PAIN [None]
  - NAUSEA [None]
  - VOMITING [None]
  - PULMONARY EMBOLISM [None]
  - CHEST PAIN [None]
